FAERS Safety Report 20207680 (Version 2)
Quarter: 2021Q4

REPORT INFORMATION
  Report Type: Spontaneous
  Country: US (occurrence: US)
  Receive Date: 20211220
  Receipt Date: 20211227
  Transmission Date: 20220303
  Serious: Yes (Other)
  Sender: FDA-Public Use
  Company Number: US-PFIZER INC-202101788168

PATIENT

DRUGS (2)
  1. AMIODARONE HYDROCHLORIDE [Interacting]
     Active Substance: AMIODARONE HYDROCHLORIDE
     Dosage: UNK
  2. ALFUZOSIN [Interacting]
     Active Substance: ALFUZOSIN
     Dosage: UNK

REACTIONS (4)
  - Arrhythmia [Unknown]
  - Arteriosclerosis [Unknown]
  - Coronary artery bypass [Unknown]
  - Drug interaction [Unknown]
